FAERS Safety Report 10171435 (Version 1)
Quarter: 2014Q2

REPORT INFORMATION
  Report Type: Spontaneous
  Country: IN (occurrence: None)
  Receive Date: 20140512
  Receipt Date: 20140512
  Transmission Date: 20141212
  Serious: Yes (Other)
  Sender: FDA-Public Use
  Company Number: AUR-APL-2014-05399

PATIENT
  Age: 48 Year
  Sex: Female

DRUGS (1)
  1. ZOLPIDEM (ZOLPIDEM) [Suspect]
     Indication: INSOMNIA

REACTIONS (11)
  - Irritability [None]
  - Decreased appetite [None]
  - Feeling of despair [None]
  - Feelings of worthlessness [None]
  - Depressed mood [None]
  - Suicidal ideation [None]
  - Insomnia [None]
  - Drug dependence [None]
  - Iatrogenic injury [None]
  - Feeling guilty [None]
  - Affective disorder [None]
